FAERS Safety Report 6404319-4 (Version None)
Quarter: 2009Q4

REPORT INFORMATION
  Report Type: 
  Country: None (occurrence: None)
  Receive Date: 20091013
  Receipt Date: 20091001
  Transmission Date: 20100525
  Serious: Yes (Hospitalization, Other)
  Sender: FDA-Public Use
  Company Number: 2009-03610

PATIENT
  Sex: Female

DRUGS (2)
  1. VELCADE [Suspect]
     Indication: MULTIPLE MYELOMA
     Dosage: 1.3 MG/M2
  2. LITHIUM CARBONATE [Suspect]
     Indication: BIPOLAR DISORDER

REACTIONS (5)
  - CHOLECYSTITIS ACUTE [None]
  - CHOREOATHETOSIS [None]
  - CONDITION AGGRAVATED [None]
  - DIARRHOEA [None]
  - RENAL FAILURE CHRONIC [None]
